FAERS Safety Report 6380267-3 (Version None)
Quarter: 2009Q3

REPORT INFORMATION
  Report Type: 
  Country: None (occurrence: None)
  Receive Date: 20090929
  Receipt Date: 20090918
  Transmission Date: 20100115
  Serious: Yes (Hospitalization)
  Sender: FDA-Public Use
  Company Number: US-ROCHE-649334

PATIENT
  Sex: Female
  Weight: 48.1 kg

DRUGS (1)
  1. BONIVA [Suspect]
     Indication: DRUG USE FOR UNKNOWN INDICATION
     Dosage: RECEIVED ON 28 MAY 2009
     Route: 042
     Dates: start: 20090528

REACTIONS (2)
  - FALL [None]
  - HIP FRACTURE [None]
